FAERS Safety Report 8620186-2 (Version None)
Quarter: 2012Q3

REPORT INFORMATION
  Report Type: 
  Country: None (occurrence: None)
  Receive Date: 20120824
  Receipt Date: 20120816
  Transmission Date: 20120928
  Serious: Yes (Other)
  Sender: FDA-Public Use
  Company Number: PHHY2012GB072736

PATIENT

DRUGS (1)
  1. ENOXAPARIN [Suspect]
     Route: 064

REACTIONS (2)
  - FOETAL EXPOSURE DURING PREGNANCY [None]
  - PREMATURE BABY [None]
